FAERS Safety Report 12986989 (Version 2)
Quarter: 2016Q4

REPORT INFORMATION
  Report Type: Spontaneous
  Country: US (occurrence: US)
  Receive Date: 20161130
  Receipt Date: 20161201
  Transmission Date: 20170207
  Serious: No
  Sender: FDA-Public Use
  Company Number: US-PFIZER INC-2016554312

PATIENT
  Age: 82 Year
  Sex: Female
  Weight: 75.57 kg

DRUGS (12)
  1. LYRICA [Suspect]
     Active Substance: PREGABALIN
     Dosage: 75 MG, 1X/DAY
     Dates: start: 201611, end: 20161123
  2. SIMVASTATIN. [Concomitant]
     Active Substance: SIMVASTATIN
     Indication: BLOOD CHOLESTEROL INCREASED
     Dosage: 20 MG, 1X/DAY (BEEN ON THIS A WHILE)
  3. LYRICA [Suspect]
     Active Substance: PREGABALIN
     Indication: NEURALGIA
     Dosage: 75 MG, 2X/DAY
     Dates: start: 201606, end: 201610
  4. LYRICA [Suspect]
     Active Substance: PREGABALIN
     Indication: NERVE COMPRESSION
     Dosage: 75 MG, 2X/DAY
     Dates: start: 2016, end: 201611
  5. LEVOTHYROXINE. [Concomitant]
     Active Substance: LEVOTHYROXINE
     Indication: THYROID DISORDER
     Dosage: 0.125 MG, 1X/DAY (PROBABLY BEEN TAKING IT SINCE 1998 OR 1999)
  6. DILTIAZEM. [Concomitant]
     Active Substance: DILTIAZEM
     Indication: BLOOD PRESSURE ABNORMAL
     Dosage: 240 MG, 1X/DAY (PROBABLY BEEN TAKING IT SINCE 1998 OR 1999)
  7. BENADRYL [Concomitant]
     Active Substance: DIPHENHYDRAMINE HYDROCHLORIDE
     Indication: URTICARIA
     Dosage: 25 MG, UNK (BEEN TAKING THIS FOR ABOUT 5 YEARS)
  8. PEPCID AC [Concomitant]
     Active Substance: FAMOTIDINE
     Indication: URTICARIA
     Dosage: 20 MG, 2X/DAY (HAS BEEN ON THIS FOR 4 TO 5 YEARS)
  9. TYLENOL [Concomitant]
     Active Substance: ACETAMINOPHEN
     Indication: PAIN
     Dosage: UNK (TAKES ONCE IN A WHILE)
  10. MELOXICAM. [Concomitant]
     Active Substance: MELOXICAM
  11. FAMOTIDINE. [Concomitant]
     Active Substance: FAMOTIDINE
     Indication: URTICARIA
     Dosage: 20 MG, 2X/DAY
  12. OMEPRAZOLE. [Concomitant]
     Active Substance: OMEPRAZOLE
     Indication: DYSPHAGIA
     Dosage: 40 MG, 1X/DAY
     Dates: start: 2000

REACTIONS (11)
  - Myalgia [Not Recovered/Not Resolved]
  - Vision blurred [Not Recovered/Not Resolved]
  - Pain [Not Recovered/Not Resolved]
  - Back pain [Not Recovered/Not Resolved]
  - Head injury [Unknown]
  - Lip swelling [Not Recovered/Not Resolved]
  - Feeling abnormal [Not Recovered/Not Resolved]
  - Dizziness [Not Recovered/Not Resolved]
  - Vertigo [Unknown]
  - Urinary incontinence [Unknown]
  - Fall [Unknown]

NARRATIVE: CASE EVENT DATE: 201609
